FAERS Safety Report 7770982-9 (Version None)
Quarter: 2011Q3

REPORT INFORMATION
  Report Type: 
  Country: None (occurrence: None)
  Receive Date: 20110922
  Receipt Date: 20100816
  Transmission Date: 20111222
  Serious: No
  Sender: FDA-Public Use
  Company Number: US-ASTRAZENECA-2008UW28435

PATIENT
  Age: 25 Year
  Sex: Male
  Weight: 81.6 kg

DRUGS (4)
  1. LIPITOR [Concomitant]
     Indication: BLOOD CHOLESTEROL INCREASED
  2. LIPITOR [Concomitant]
     Indication: HYPERLIPIDAEMIA
  3. SEROQUEL [Suspect]
     Indication: SLEEP DISORDER
     Route: 048
     Dates: start: 19990801, end: 20010101
  4. SEROQUEL [Suspect]
     Indication: INSOMNIA
     Route: 048
     Dates: start: 19990801, end: 20010101

REACTIONS (3)
  - HYPOTHYROIDISM [None]
  - THYROID DISORDER [None]
  - TYPE 2 DIABETES MELLITUS [None]
